FAERS Safety Report 4970415-1 (Version None)
Quarter: 2006Q2

REPORT INFORMATION
  Report Type: 
  Country: None (occurrence: None)
  Receive Date: 20060412
  Receipt Date: 20040105
  Transmission Date: 20061013
  Serious: Yes (Hospitalization)
  Sender: FDA-Public Use
  Company Number: 200410023GDDC

PATIENT
  Age: 45 Year
  Sex: Male

DRUGS (34)
  1. ALTACE [Suspect]
     Dosage: 5 MG, UNK
     Route: 048
     Dates: start: 20031003, end: 20031103
  2. ASPIRIN [Suspect]
     Indication: MYOCARDIAL INFARCTION
     Dosage: 150 MG, QD
     Route: 048
     Dates: start: 20030930
  3. STREPTOKINASE [Suspect]
     Indication: MYOCARDIAL INFARCTION
     Dosage: 1.5 MG, SINGLE
     Route: 042
     Dates: start: 20030930, end: 20030930
  4. ATENOLOL [Suspect]
     Dosage: 50 MG, QD
     Route: 048
     Dates: start: 20031003, end: 20031103
  5. ATENOLOL [Suspect]
     Dosage: 25 MG, QD
     Route: 048
     Dates: start: 20031103
  6. CEFTRIAXONE [Concomitant]
     Dosage: 1 G, UNK
     Route: 042
     Dates: end: 20030910
  7. METRONIDAZOLE [Concomitant]
     Dosage: 500 MG, UNK
     Route: 042
     Dates: start: 20031005, end: 20031008
  8. TEMAZEPAM [Concomitant]
     Dosage: 10 MG, UNK
     Route: 048
     Dates: start: 20031006, end: 20031007
  9. TEMAZEPAM [Concomitant]
     Dosage: 25 MG, QD
     Route: 048
  10. CLINDAMYCIN [Concomitant]
     Dosage: 300 MG, UNK
     Route: 048
     Dates: start: 20031007, end: 20031009
  11. VENTOLIN [Concomitant]
     Dosage: 5 UG, QD
     Route: 048
     Dates: start: 20031007, end: 20031008
  12. CHLORVESCENT [Concomitant]
     Dosage: UNK, QD
     Route: 048
     Dates: start: 20031004, end: 20031006
  13. AMIODARONE [Concomitant]
     Dosage: 1500 MG, QD
     Route: 042
     Dates: start: 20030930, end: 20030930
  14. MORPHINE [Concomitant]
     Dosage: 2.5 MG, QD
     Route: 042
     Dates: start: 20030930
  15. MIDAZOLAM [Concomitant]
     Dosage: 5 MG, QD
     Route: 042
  16. MAGNESIUM SULFATE [Concomitant]
     Dosage: 10 MG, QD
     Route: 042
     Dates: start: 20030930, end: 20030930
  17. PHOSPHATE-SANDOZ [Concomitant]
     Dosage: 13 ML, QD
     Route: 042
     Dates: start: 20030930, end: 20030930
  18. NORADRENALINE [Concomitant]
     Dosage: 6 MG, QD
     Route: 042
     Dates: start: 20031101, end: 20031102
  19. INSULIN ACTRAPID HUMAN [Concomitant]
     Dosage: UNK, QD
     Route: 042
     Dates: start: 20031102, end: 20031103
  20. CLOPIDOGREL [Concomitant]
     Dosage: 75 MG, QD
     Route: 048
     Dates: start: 20031101
  21. ASPIRIN [Concomitant]
     Dosage: 180 MG, QD
     Route: 048
     Dates: start: 20030930, end: 20031015
  22. PRAVASTATIN [Concomitant]
     Dosage: 40 MG, QD
     Route: 048
     Dates: start: 20031103, end: 20031103
  23. AUGMENTIN '125' [Concomitant]
     Route: 048
     Dates: start: 20031015
  24. ATENOLOL [Concomitant]
     Dosage: 50 MG, QD
     Route: 048
     Dates: start: 20031003
  25. CLEXANE [Concomitant]
     Dosage: 100 MG, QD
     Route: 058
     Dates: start: 20031015, end: 20031015
  26. PARACETAMOL [Concomitant]
     Dosage: 1 G, QD
     Route: 048
  27. MAXOLON [Concomitant]
     Dosage: 10 MG, QD
     Route: 042
     Dates: start: 20031004, end: 20031006
  28. HEPARIN [Concomitant]
     Dosage: 25000 U, QD
     Route: 042
     Dates: start: 20030930, end: 20030930
  29. KCL-ZYMA [Concomitant]
  30. ADRENALINE [Concomitant]
     Dosage: 6 MG, QD
     Route: 042
     Dates: start: 20031002, end: 20031002
  31. LASIX [Concomitant]
     Dosage: 80 MG, QD
     Route: 042
     Dates: start: 20031001, end: 20031001
  32. PROPOFOL [Concomitant]
     Dosage: 600 MG, QD
     Route: 042
     Dates: start: 20030930, end: 20030930
  33. VECURONIUM BROMIDE [Concomitant]
     Dosage: 8 MG, UNK
     Route: 042
     Dates: start: 20030930, end: 20030930
  34. HEPARIN [Suspect]
     Indication: MYOCARDIAL INFARCTION
     Dates: start: 20030930, end: 20030930

REACTIONS (5)
  - CHEST PAIN [None]
  - DEEP VEIN THROMBOSIS [None]
  - MOBILITY DECREASED [None]
  - OEDEMA PERIPHERAL [None]
  - PAIN IN EXTREMITY [None]
